FAERS Safety Report 21664551 (Version 1)
Quarter: 2022Q4

REPORT INFORMATION
  Report Type: Report from Study
  Country: US (occurrence: US)
  Receive Date: 20221130
  Receipt Date: 20221130
  Transmission Date: 20230112
  Serious: Yes (Hospitalization, Other)
  Sender: FDA-Public Use
  Company Number: US-PFIZER INC-PV202200109860

PATIENT
  Age: 79 Year
  Sex: Female
  Weight: 75.3 kg

DRUGS (8)
  1. AZITHROMYCIN [Suspect]
     Active Substance: AZITHROMYCIN
     Dosage: UNK
  2. TYVASO [Suspect]
     Active Substance: TREPROSTINIL
     Indication: Pulmonary arterial hypertension
     Dosage: UNK
     Dates: start: 20221005
  3. TYVASO [Suspect]
     Active Substance: TREPROSTINIL
     Dosage: 16 UG, 4X/DAY
  4. TYVASO [Suspect]
     Active Substance: TREPROSTINIL
     Dosage: 32 UG, 4X/DAY
     Dates: end: 2022
  5. TREPROSTINIL [Suspect]
     Active Substance: TREPROSTINIL
     Dosage: 16 UG, 4X/DAY
     Dates: start: 202210
  6. TREPROSTINIL [Suspect]
     Active Substance: TREPROSTINIL
     Dosage: 32 UG, 4X/DAY
     Dates: start: 2022, end: 2022
  7. SILDENAFIL CITRATE [Concomitant]
     Active Substance: SILDENAFIL CITRATE
     Dosage: UNK
  8. DOXYCYCLINE [Concomitant]
     Active Substance: DOXYCYCLINE
     Dosage: 750 MG, DAILY

REACTIONS (7)
  - Pneumonia [Unknown]
  - Haemoptysis [Unknown]
  - Sputum discoloured [Unknown]
  - Productive cough [Unknown]
  - Condition aggravated [Recovered/Resolved]
  - Oxygen saturation decreased [Not Recovered/Not Resolved]
  - Dyspnoea [Not Recovered/Not Resolved]

NARRATIVE: CASE EVENT DATE: 20220101
